FAERS Safety Report 15594596 (Version 1)
Quarter: 2018Q4

REPORT INFORMATION
  Report Type: Spontaneous
  Country: US (occurrence: US)
  Receive Date: 20181106
  Receipt Date: 20181106
  Transmission Date: 20190205
  Serious: No
  Sender: FDA-Public Use
  Company Number: US-SA-2018SA301580

PATIENT
  Age: 43 Year
  Sex: Male

DRUGS (3)
  1. CEPHALEXIN [CEFALEXIN] [Concomitant]
  2. CLOBETASOL [Concomitant]
     Active Substance: CLOBETASOL
  3. DUPIXENT [Suspect]
     Active Substance: DUPILUMAB
     Indication: NEURODERMATITIS
     Dosage: 300 MG, QOW
     Route: 058
     Dates: start: 20180425

REACTIONS (1)
  - Muscle twitching [Not Recovered/Not Resolved]

NARRATIVE: CASE EVENT DATE: 201810
